FAERS Safety Report 17714930 (Version 4)
Quarter: 2021Q2

REPORT INFORMATION
  Report Type: Spontaneous
  Country: US (occurrence: US)
  Receive Date: 20200427
  Receipt Date: 20210624
  Transmission Date: 20210716
  Serious: Yes (Other)
  Sender: FDA-Public Use
  Company Number: US-GILEAD-2020-0460248

PATIENT
  Age: 50 Year
  Sex: Female
  Weight: 77.1 kg

DRUGS (21)
  1. DEPAKOTE [Concomitant]
     Active Substance: DIVALPROEX SODIUM
  2. ACYCLOVIR [ACICLOVIR] [Concomitant]
     Active Substance: ACYCLOVIR
  3. VICODIN [Concomitant]
     Active Substance: ACETAMINOPHEN\HYDROCODONE BITARTRATE
  4. CELEXA [CELECOXIB] [Concomitant]
     Active Substance: CELECOXIB
  5. CITALOPRAM HYDROBROMIDE. [Concomitant]
     Active Substance: CITALOPRAM HYDROBROMIDE
  6. ZYRTEC [Concomitant]
     Active Substance: CETIRIZINE HYDROCHLORIDE
  7. ZYPREXA [Concomitant]
     Active Substance: OLANZAPINE
  8. ELAVIL [ALLOPURINOL] [Concomitant]
     Active Substance: ALLOPURINOL
  9. VISTARIL [Concomitant]
     Active Substance: HYDROXYZINE PAMOATE
  10. VALIUM [Concomitant]
     Active Substance: DIAZEPAM
  11. NORVIR [Concomitant]
     Active Substance: RITONAVIR
  12. PROZAC [Concomitant]
     Active Substance: FLUOXETINE HYDROCHLORIDE
  13. CLONAZEPAM. [Concomitant]
     Active Substance: CLONAZEPAM
  14. ROBITUSSIN (GUAIFENESIN) [Concomitant]
     Active Substance: GUAIFENESIN
  15. TYLENOL [Concomitant]
     Active Substance: ACETAMINOPHEN
  16. BIKTARVY [Concomitant]
     Active Substance: BICTEGRAVIR SODIUM\EMTRICITABINE\TENOFOVIR ALAFENAMIDE FUMARATE
  17. PREDNISONE. [Concomitant]
     Active Substance: PREDNISONE
  18. TRUVADA [Suspect]
     Active Substance: EMTRICITABINE\TENOFOVIR DISOPROXIL FUMARATE
     Indication: HIV INFECTION
     Dosage: UNK
     Route: 048
     Dates: start: 20080314, end: 20141003
  19. ABILIFY [Concomitant]
     Active Substance: ARIPIPRAZOLE
  20. EPZICOM [Concomitant]
     Active Substance: ABACAVIR SULFATE\LAMIVUDINE
  21. REYATAZ [Concomitant]
     Active Substance: ATAZANAVIR SULFATE

REACTIONS (19)
  - Foot fracture [Unknown]
  - Emotional distress [Not Recovered/Not Resolved]
  - Osteonecrosis [Unknown]
  - Bone loss [Unknown]
  - Bone density decreased [Unknown]
  - Osteopenia [Not Recovered/Not Resolved]
  - Neuropathy peripheral [Not Recovered/Not Resolved]
  - Chronic kidney disease [Not Recovered/Not Resolved]
  - Osteoporosis [Unknown]
  - Renal failure [Unknown]
  - Tooth loss [Unknown]
  - Osteophyte fracture [Not Recovered/Not Resolved]
  - Spinal osteoarthritis [Unknown]
  - Carpal tunnel syndrome [Not Recovered/Not Resolved]
  - Osteoarthritis [Not Recovered/Not Resolved]
  - Pain [Not Recovered/Not Resolved]
  - Hip arthroplasty [Not Recovered/Not Resolved]
  - Fatigue [Unknown]
  - Disturbance in attention [Unknown]

NARRATIVE: CASE EVENT DATE: 2015
